FAERS Safety Report 8846192 (Version 2)
Quarter: 2013Q2

REPORT INFORMATION
  Report Type: Spontaneous
  Country: US (occurrence: US)
  Receive Date: 20121017
  Receipt Date: 20130401
  Transmission Date: 20140414
  Serious: Yes (Hospitalization)
  Sender: FDA-Public Use
  Company Number: US-GILEAD-2012-0060954

PATIENT
  Sex: Female

DRUGS (1)
  1. LETAIRIS [Suspect]
     Indication: CREST SYNDROME
     Dosage: 5 MG, UNK
     Route: 048
     Dates: start: 20110128

REACTIONS (4)
  - Knee arthroplasty [Unknown]
  - Cardio-respiratory arrest [Unknown]
  - Cardiac arrest [Unknown]
  - Drug ineffective [Unknown]
